FAERS Safety Report 6603364-3 (Version None)
Quarter: 2010Q1

REPORT INFORMATION
  Report Type: 
  Country: None (occurrence: None)
  Receive Date: 20100226
  Receipt Date: 20090302
  Transmission Date: 20100710
  Serious: No
  Sender: FDA-Public Use
  Company Number: A0771141A

PATIENT
  Age: 72 Year
  Sex: Male

DRUGS (10)
  1. VALTREX [Suspect]
     Dosage: 1G THREE TIMES PER DAY
     Route: 048
     Dates: start: 20090225, end: 20090225
  2. WELCHOL [Concomitant]
  3. ASPIRIN [Concomitant]
  4. CALCIUM [Concomitant]
  5. ALTACE [Concomitant]
  6. TERAZOSIN HCL [Concomitant]
  7. FOSAMAX [Concomitant]
  8. NIASPAN [Concomitant]
  9. AMIODARONE [Concomitant]
  10. CO Q10 [Concomitant]

REACTIONS (4)
  - BACK PAIN [None]
  - PYREXIA [None]
  - SPEECH DISORDER [None]
  - VOMITING [None]
